FAERS Safety Report 8831977 (Version 2)
Quarter: 2014Q3

REPORT INFORMATION
  Report Type: Report from Study
  Country: US (occurrence: US)
  Receive Date: 20121009
  Receipt Date: 20140822
  Transmission Date: 20150326
  Serious: Yes (Life-Threatening, Disabling)
  Sender: FDA-Public Use
  Company Number: US-ROCHE-1141621

PATIENT
  Age: 68 Year
  Sex: Female
  Weight: 46.76 kg

DRUGS (5)
  1. ESTRONE [Concomitant]
     Active Substance: ESTRONE
  2. SALSALATE. [Concomitant]
     Active Substance: SALSALATE
  3. RITUXAN [Suspect]
     Active Substance: RITUXIMAB
     Indication: CHRONIC LYMPHOCYTIC LEUKAEMIA
     Dosage: WEEK 1 560, WEEK 2 750MG, WEEKS 3 1500MG AND WEEK 4 2250MG.
     Route: 042
     Dates: start: 20000412, end: 20011109
  4. MISOPROSTOL. [Concomitant]
     Active Substance: MISOPROSTOL
  5. RITUXAN [Suspect]
     Active Substance: RITUXIMAB
     Dosage: WEEK 1 560, WEEK 2 750MG, WEEKS 3 1500MG AND WEEK 4 2250MG.?SECOND COURSE
     Route: 042
     Dates: start: 20011012

REACTIONS (5)
  - Lymphadenopathy [Unknown]
  - Post herpetic neuralgia [Unknown]
  - Chronic obstructive pulmonary disease [Not Recovered/Not Resolved]
  - Thrombocytopenia [Unknown]
  - Herpes zoster [Unknown]

NARRATIVE: CASE EVENT DATE: 200106
